FAERS Safety Report 10069428 (Version 2)
Quarter: 2014Q2

REPORT INFORMATION
  Report Type: Spontaneous
  Country: HN (occurrence: HN)
  Receive Date: 20140410
  Receipt Date: 20140414
  Transmission Date: 20141212
  Serious: Yes (Other)
  Sender: FDA-Public Use
  Company Number: HN-009507513-1404HND005021

PATIENT
  Age: 19 Year
  Sex: Female

DRUGS (1)
  1. IMPLANON [Suspect]
     Indication: CONTRACEPTION
     Dosage: 68 MG, TRIENIALLOT, TOTAL DAILY DOSE: 60-70 MICROGRAM/DAY
     Route: 059

REACTIONS (2)
  - Loss of consciousness [Recovered/Resolved]
  - Convulsion [Recovered/Resolved]
